FAERS Safety Report 10245277 (Version 1)
Quarter: 2014Q2

REPORT INFORMATION
  Report Type: Spontaneous
  Country: BR (occurrence: BR)
  Receive Date: 20140618
  Receipt Date: 20140618
  Transmission Date: 20141212
  Serious: Yes (Other)
  Sender: FDA-Public Use
  Company Number: BR-009507513-1406BRA007366

PATIENT
  Sex: Female
  Weight: 80 kg

DRUGS (1)
  1. MERCILON [Suspect]
     Indication: CONTRACEPTION
     Dosage: 1 DF, QD
     Route: 048

REACTIONS (2)
  - Mammoplasty [Recovered/Resolved]
  - Maternal exposure before pregnancy [Unknown]
